FAERS Safety Report 7300732-1 (Version None)
Quarter: 2011Q1

REPORT INFORMATION
  Report Type: 
  Country: None (occurrence: None)
  Receive Date: 20110105
  Receipt Date: 20100608
  Transmission Date: 20110831
  Serious: Yes (Death)
  Sender: FDA-Public Use
  Company Number: 302829

PATIENT
  Sex: Male

DRUGS (2)
  1. ACTIVASE [Suspect]
     Indication: ARTERIAL THROMBOSIS
     Dosage: 2 MG, IV BOLUS, 0.1 MG/KG, Q1H, INTRAVENOUS
     Route: 040
     Dates: start: 20100607
  2. ACTIVASE [Suspect]
     Indication: ARTERIAL THROMBOSIS
     Dosage: 2 MG, IV BOLUS, 0.1 MG/KG, Q1H, INTRAVENOUS
     Route: 040
     Dates: start: 20100607

REACTIONS (1)
  - HAEMATOMA [None]
